FAERS Safety Report 18553134 (Version 3)
Quarter: 2021Q4

REPORT INFORMATION
  Report Type: Spontaneous
  Country: JP (occurrence: JP)
  Receive Date: 20201127
  Receipt Date: 20211019
  Transmission Date: 20220303
  Serious: Yes (Death)
  Sender: FDA-Public Use
  Company Number: JP-CHUGAI-A2020050471ROCHE

PATIENT
  Age: 61 Year

DRUGS (2)
  1. ACTEMRA [Suspect]
     Active Substance: TOCILIZUMAB
     Indication: Cytokine release syndrome
     Dosage: DOSAGE IS UNCERTAIN, DATE OF MOST RECENT DOSE: 23/SEP/2020, 24/SEP/2020, 25/SEP/2020
     Route: 065
     Dates: start: 20200922
  2. KYMRIAH [Suspect]
     Active Substance: TISAGENLECLEUCEL
     Indication: Diffuse large B-cell lymphoma recurrent
     Route: 041
     Dates: start: 20200918

REACTIONS (1)
  - Disease progression [Fatal]
